FAERS Safety Report 5483446-2 (Version None)
Quarter: 2007Q4

REPORT INFORMATION
  Report Type: 
  Country: None (occurrence: None)
  Receive Date: 20071009
  Receipt Date: 20070921
  Transmission Date: 20080405
  Serious: Yes (Hospitalization)
  Sender: FDA-Public Use
  Company Number: DSA_30664_2007

PATIENT
  Sex: Male

DRUGS (5)
  1. ATIVAN [Suspect]
     Indication: DRUG USE FOR UNKNOWN INDICATION
     Dosage: (ESTIMATED BETWEEN 4 TO 8 TABLETS TOTAL ORAL)
     Route: 048
     Dates: start: 20070813, end: 20070814
  2. CNTO 95 SOLUTION (STUDY DRUG) [Suspect]
     Indication: METASTATIC MALIGNANT MELANOMA
     Dosage: (10 MG/KG  1X/3 WEEKS INTRAVENOUS)
     Route: 042
     Dates: start: 20070813
  3. METOPROLOL SUCCINATE [Suspect]
     Indication: DRUG USE FOR UNKNOWN INDICATION
     Dosage: (DF)
  4. PAXIL [Concomitant]
  5. FLORINEF [Concomitant]

REACTIONS (21)
  - ACCIDENTAL OVERDOSE [None]
  - AGITATION [None]
  - AORTIC VALVE INCOMPETENCE [None]
  - ATRIOVENTRICULAR BLOCK FIRST DEGREE [None]
  - BLOOD POTASSIUM DECREASED [None]
  - BLOOD URINE PRESENT [None]
  - BRAIN NATRIURETIC PEPTIDE INCREASED [None]
  - CARDIAC FAILURE CONGESTIVE [None]
  - DELIRIUM [None]
  - DRUG INTERACTION [None]
  - ENCEPHALOPATHY [None]
  - HAEMOGLOBIN DECREASED [None]
  - INTERVERTEBRAL DISC DEGENERATION [None]
  - LETHARGY [None]
  - LYMPHOCYTE COUNT DECREASED [None]
  - NEUROPATHY PERIPHERAL [None]
  - NEUTROPHIL COUNT INCREASED [None]
  - OXYGEN SATURATION DECREASED [None]
  - PULMONARY HYPERTENSION [None]
  - PULMONARY VALVE INCOMPETENCE [None]
  - SINUS BRADYCARDIA [None]
